FAERS Safety Report 9230653 (Version 2)
Quarter: 2013Q2

REPORT INFORMATION
  Report Type: Spontaneous
  Country: US (occurrence: US)
  Receive Date: 20130415
  Receipt Date: 20130422
  Transmission Date: 20140414
  Serious: Yes (Other)
  Sender: FDA-Public Use
  Company Number: US-PFIZER INC-2013113723

PATIENT
  Age: 81 Year
  Sex: Male
  Weight: 64.4 kg

DRUGS (3)
  1. PROTONIX [Suspect]
     Indication: GASTRIC DISORDER
     Dosage: 40 MG, DAILY
  2. PROTONIX [Suspect]
     Indication: DYSPEPSIA
  3. ASPIRIN [Concomitant]
     Dosage: 325 MG, DAILY

REACTIONS (1)
  - Spinal disorder [Unknown]
